FAERS Safety Report 5888286-8 (Version None)
Quarter: 2008Q3

REPORT INFORMATION
  Report Type: 
  Country: None (occurrence: None)
  Receive Date: 20080918
  Receipt Date: 20071018
  Transmission Date: 20090109
  Serious: Yes (Hospitalization)
  Sender: FDA-Public Use
  Company Number: IT-ROCHE-571347

PATIENT
  Sex: Male
  Weight: 80 kg

DRUGS (2)
  1. PEGASYS [Suspect]
     Dosage: DOSE AND STRENGTH REPORTED AS 180.
     Route: 065
     Dates: start: 20050429, end: 20060605
  2. REBETOL [Suspect]
     Dosage: DOSE REPORTED AS 1000.
     Route: 065
     Dates: start: 20050429, end: 20060605

REACTIONS (1)
  - CEREBROVASCULAR ACCIDENT [None]
